FAERS Safety Report 25176476 (Version 1)
Quarter: 2025Q2

REPORT INFORMATION
  Report Type: Spontaneous
  Country: CN (occurrence: CN)
  Receive Date: 20250409
  Receipt Date: 20250409
  Transmission Date: 20250716
  Serious: Yes (Life-Threatening)
  Sender: GE HEALTHCARE
  Company Number: CN-GE HEALTHCARE-2025CSU004228

PATIENT
  Age: 62 Year
  Sex: Female
  Weight: 75 kg

DRUGS (2)
  1. OMNIPAQUE [Suspect]
     Active Substance: IOHEXOL
     Indication: Computerised tomogram head
     Route: 042
     Dates: start: 20250328, end: 20250328
  2. SODIUM CHLORIDE [Concomitant]
     Active Substance: SODIUM CHLORIDE
     Dates: start: 20250328, end: 20250328

REACTIONS (7)
  - Foaming at mouth [Recovering/Resolving]
  - Trismus [Recovering/Resolving]
  - Oxygen saturation decreased [Recovering/Resolving]
  - Generalised tonic-clonic seizure [Recovered/Resolved]
  - Loss of consciousness [Recovering/Resolving]
  - Palpitations [Recovering/Resolving]
  - Hypertension [Recovering/Resolving]

NARRATIVE: CASE EVENT DATE: 20250328
